FAERS Safety Report 6541185-0 (Version None)
Quarter: 2010Q1

REPORT INFORMATION
  Report Type: 
  Country: None (occurrence: None)
  Receive Date: 20100118
  Receipt Date: 20100108
  Transmission Date: 20100710
  Serious: Yes (Hospitalization)
  Sender: FDA-Public Use
  Company Number: B0624315A

PATIENT
  Sex: Male

DRUGS (14)
  1. FRAXODI [Suspect]
     Dosage: .3ML PER DAY
     Route: 058
     Dates: start: 20091105, end: 20091116
  2. ARIXTRA [Suspect]
     Route: 065
     Dates: start: 20090701, end: 20091104
  3. ALIMTA [Suspect]
     Indication: ADENOCARCINOMA
     Dosage: 560MG SINGLE DOSE
     Route: 042
     Dates: start: 20091105, end: 20091105
  4. TARCEVA [Concomitant]
     Indication: ADENOCARCINOMA
     Dosage: 100MG PER DAY
     Route: 048
     Dates: start: 20090701
  5. MONOTILDIEM LP 300 MG [Concomitant]
     Indication: ACNE
     Dosage: 300MG PER DAY
     Route: 048
  6. NOVONORM [Concomitant]
     Indication: ACNE
     Dosage: 1MG THREE TIMES PER DAY
     Route: 048
  7. NOVOMIX [Concomitant]
     Indication: ACNE
     Dosage: 30UNIT PER DAY
     Route: 058
  8. PRAVASTATINE NATRIUM [Concomitant]
     Indication: ACNE
     Dosage: 40MG PER DAY
     Route: 048
  9. FORTZAAR [Concomitant]
     Indication: ACNE
     Dosage: 1UNIT PER DAY
     Route: 048
  10. DOXYCYCLINE [Concomitant]
     Indication: ACNE
     Dosage: 100MG PER DAY
     Route: 048
  11. SOLUPRED [Concomitant]
     Indication: PREMEDICATION
     Dosage: 60MG PER DAY
     Route: 065
     Dates: start: 20091105
  12. PRIMPERAN TAB [Concomitant]
     Indication: PREMEDICATION
     Route: 065
     Dates: start: 20091105
  13. NEULASTA [Concomitant]
     Indication: PREMEDICATION
     Dosage: 1UNIT PER DAY
     Route: 065
     Dates: start: 20091105
  14. FOLIC ACID SUPPLEMENT [Concomitant]
     Indication: DRUG USE FOR UNKNOWN INDICATION
     Dosage: .4MG PER DAY
     Route: 065
     Dates: start: 20091105

REACTIONS (4)
  - ABDOMINAL PAIN UPPER [None]
  - HAEMOPTYSIS [None]
  - INCORRECT DRUG ADMINISTRATION DURATION [None]
  - THROMBOCYTOPENIA [None]
